FAERS Safety Report 7857922-9 (Version None)
Quarter: 2011Q4

REPORT INFORMATION
  Report Type: 
  Country: None (occurrence: None)
  Receive Date: 20111027
  Receipt Date: 20110304
  Transmission Date: 20120403
  Serious: Yes (Hospitalization)
  Sender: FDA-Public Use
  Company Number: GB-BAYER-2011-021109

PATIENT
  Age: 68 Year
  Sex: Male

DRUGS (9)
  1. ASPIRIN [Concomitant]
  2. QUININE SULFATE [Suspect]
     Indication: MUSCLE SPASMS
     Dosage: 200 MG, QD
     Dates: start: 20110106, end: 20110217
  3. AMLODIPINE [Concomitant]
  4. IRBESARTAN [Concomitant]
  5. OMEPRAZOLE [Suspect]
     Indication: PROPHYLAXIS
     Dosage: 20 MG, QD
     Dates: start: 20110207, end: 20110217
  6. BROMOCRIPTINE MESYLATE [Concomitant]
  7. LEVOTHYROXINE SODIUM [Concomitant]
  8. NAPROXEN SODIUM [Suspect]
     Dosage: 250 MG, BID
     Route: 048
     Dates: start: 20110207, end: 20110217
  9. SIMVASTATIN [Concomitant]

REACTIONS (8)
  - STEVENS-JOHNSON SYNDROME [None]
  - CONFUSIONAL STATE [None]
  - RASH ERYTHEMATOUS [None]
  - DIARRHOEA [None]
  - VOMITING [None]
  - MOUTH ULCERATION [None]
  - CONJUNCTIVITIS [None]
  - PURPURA [None]
